FAERS Safety Report 17047792 (Version 1)
Quarter: 2019Q4

REPORT INFORMATION
  Report Type: Spontaneous
  Country: FR (occurrence: FR)
  Receive Date: 20191119
  Receipt Date: 20191119
  Transmission Date: 20200122
  Serious: Yes (Hospitalization)
  Sender: FDA-Public Use
  Company Number: FR-PFIZER INC-2019492840

PATIENT
  Age: 17 Year
  Sex: Male
  Weight: 46.3 kg

DRUGS (3)
  1. MEKINIST [Suspect]
     Active Substance: TRAMETINIB DIMETHYL SULFOXIDE
     Indication: METASTATIC MALIGNANT MELANOMA
     Dosage: 2 MG, 1X/DAY
     Route: 048
     Dates: start: 20190718
  2. SOLU-MEDROL [Suspect]
     Active Substance: METHYLPREDNISOLONE SODIUM SUCCINATE
     Indication: METASTATIC MALIGNANT MELANOMA
     Dosage: 2 MG/KG, 1X/DAY
     Route: 042
     Dates: start: 20180717, end: 20190902
  3. TAFINLAR [Suspect]
     Active Substance: DABRAFENIB MESYLATE
     Indication: METASTATIC MALIGNANT MELANOMA
     Dosage: 300 MG, 1X/DAY
     Route: 048
     Dates: start: 20190718

REACTIONS (1)
  - Amnestic disorder [Not Recovered/Not Resolved]

NARRATIVE: CASE EVENT DATE: 20190818
